FAERS Safety Report 6870950-5 (Version None)
Quarter: 2010Q3

REPORT INFORMATION
  Report Type: 
  Country: None (occurrence: None)
  Receive Date: 20100723
  Receipt Date: 20100720
  Transmission Date: 20110219
  Serious: Yes (Hospitalization)
  Sender: FDA-Public Use
  Company Number: IT-BRISTOL-MYERS SQUIBB COMPANY-15202054

PATIENT
  Age: 60 Year
  Sex: Female

DRUGS (4)
  1. APROVEL FILM-COATED TABS 150 MG [Suspect]
     Indication: HYPERTENSION
     Dosage: 1 DF = 1.5 UNIT
     Route: 048
     Dates: start: 20100301, end: 20100711
  2. PROPAFENONE HCL [Suspect]
     Dosage: FROM 01-MAR-2010 TO 11-JUL-2010
     Route: 048
     Dates: start: 20100301
  3. PANTORC [Concomitant]
  4. ASPIRIN [Concomitant]

REACTIONS (7)
  - DYSSTASIA [None]
  - HYPERHIDROSIS [None]
  - HYPOTENSION [None]
  - NAUSEA [None]
  - PALLOR [None]
  - VERTIGO [None]
  - VISUAL ACUITY REDUCED [None]
